FAERS Safety Report 25584853 (Version 1)
Quarter: 2025Q3

REPORT INFORMATION
  Report Type: Spontaneous
  Country: EU (occurrence: EU)
  Receive Date: 20250721
  Receipt Date: 20250721
  Transmission Date: 20251020
  Serious: Yes (Other)
  Sender: BANNER
  Company Number: None

PATIENT
  Age: 48 Year
  Sex: Male

DRUGS (13)
  1. IBUPROFEN [Suspect]
     Active Substance: IBUPROFEN
     Indication: Viral infection
     Route: 048
     Dates: start: 202502, end: 202502
  2. ACETAMINOPHEN [Suspect]
     Active Substance: ACETAMINOPHEN
     Indication: Viral infection
     Route: 048
     Dates: start: 202502, end: 202502
  3. CYCLOPHOSPHAMIDE [Suspect]
     Active Substance: CYCLOPHOSPHAMIDE
     Indication: Encephalitis
     Route: 042
     Dates: start: 20241211, end: 20241211
  4. ALPRAZOLAM [Concomitant]
     Active Substance: ALPRAZOLAM
  5. ESCITALOPRAM [Concomitant]
     Active Substance: ESCITALOPRAM OXALATE
  6. DOXYCYCLINE [Concomitant]
     Active Substance: DOXYCYCLINE
  7. MESNA [Concomitant]
     Active Substance: MESNA
  8. MABTHERA [Concomitant]
     Active Substance: RITUXIMAB
     Indication: Encephalitis
     Route: 042
     Dates: start: 20241212, end: 20241212
  9. CYCLOPHOSPHAMIDE [Suspect]
     Active Substance: CYCLOPHOSPHAMIDE
     Indication: Encephalitis
     Route: 042
     Dates: start: 20250128, end: 20250128
  10. CYCLOPHOSPHAMIDE [Suspect]
     Active Substance: CYCLOPHOSPHAMIDE
     Indication: Encephalitis
     Route: 042
     Dates: start: 20250325, end: 20250325
  11. CYCLOPHOSPHAMIDE [Suspect]
     Active Substance: CYCLOPHOSPHAMIDE
     Indication: Encephalitis
     Route: 042
     Dates: start: 20250422, end: 20250422
  12. MABTHERA [Concomitant]
     Active Substance: RITUXIMAB
     Indication: Encephalitis
     Route: 042
     Dates: start: 20241231, end: 20241231
  13. MABTHERA [Concomitant]
     Active Substance: RITUXIMAB
     Indication: Encephalitis
     Route: 042
     Dates: start: 20250325, end: 20250325

REACTIONS (2)
  - Hepatic cytolysis [Recovered/Resolved]
  - Off label use [Unknown]

NARRATIVE: CASE EVENT DATE: 20250225
